FAERS Safety Report 7904242-X (Version None)
Quarter: 2011Q4

REPORT INFORMATION
  Report Type: 
  Country: None (occurrence: None)
  Receive Date: 20111109
  Receipt Date: 20111031
  Transmission Date: 20120403
  Serious: Yes (Other)
  Sender: FDA-Public Use
  Company Number: US-BAYER-2011-041402

PATIENT
  Age: 35 Year
  Sex: Female
  Weight: 68.481 kg

DRUGS (14)
  1. YAZ [Suspect]
     Dosage: UNK
     Dates: start: 20080701, end: 20080801
  2. LORAZEPAM [Concomitant]
  3. LORTAB [Concomitant]
  4. PREDNISONE [Concomitant]
  5. LOESTRIN 1.5/30 [Concomitant]
  6. LASIX [Concomitant]
     Dosage: 40 MG, UNK
  7. NEXIUM [Concomitant]
  8. FUROSEMIDE [Concomitant]
  9. DICLOFENAC SODIUM [Concomitant]
  10. YAZ [Suspect]
     Indication: CONTRACEPTION
     Dosage: UNK
     Dates: start: 20060601, end: 20070601
  11. ATIVAN [Concomitant]
  12. ETHINYL ESTRADIOL AND NORETHINDRONE [Concomitant]
  13. YASMIN [Suspect]
     Indication: CONTRACEPTION
     Dosage: UNK
     Dates: start: 20080701, end: 20090701
  14. CATAFLAM [Concomitant]
     Indication: ARTHRITIS

REACTIONS (4)
  - CHOLECYSTITIS CHRONIC [None]
  - BILIARY DYSKINESIA [None]
  - PAIN [None]
  - GALLBLADDER INJURY [None]
